FAERS Safety Report 4964524-0 (Version None)
Quarter: 2006Q2

REPORT INFORMATION
  Report Type: 
  Country: None (occurrence: None)
  Receive Date: 20060406
  Receipt Date: 20040901
  Transmission Date: 20061013
  Serious: Yes (Other)
  Sender: FDA-Public Use
  Company Number: F01200402542

PATIENT
  Age: 63 Year

DRUGS (4)
  1. FONDAPAPARINUX SODIUM [Suspect]
     Indication: MYOCARDIAL INFARCTION
     Dosage: 2.5MG PER DAY
     Route: 058
     Dates: start: 20040820
  2. CARTIA XT [Concomitant]
  3. LIPEX [Concomitant]
  4. VENTOLIN [Concomitant]
     Dosage: 100MCG FOUR TIMES PER DAY

REACTIONS (1)
  - CATHETER RELATED COMPLICATION [None]
